FAERS Safety Report 9198623 (Version 1)
Quarter: 2013Q1

REPORT INFORMATION
  Report Type: Spontaneous
  Country: US (occurrence: None)
  Receive Date: 20130327
  Receipt Date: 20130327
  Transmission Date: 20140127
  Serious: Yes (Other)
  Sender: FDA-Public Use
  Company Number: None

PATIENT
  Age: 19 Year
  Sex: Female
  Weight: 66.68 kg

DRUGS (1)
  1. AMPHETAMINE-DEXTROAMPHETAMINE XR [Suspect]
     Dates: start: 201205, end: 201210

REACTIONS (2)
  - Disturbance in attention [None]
  - Product substitution issue [None]
